FAERS Safety Report 10627640 (Version 9)
Quarter: 2022Q2

REPORT INFORMATION
  Report Type: Other
  Country: CA (occurrence: CA)
  Receive Date: 20141205
  Receipt Date: 20220421
  Transmission Date: 20220721
  Serious: Yes (Hospitalization, Other)
  Sender: FDA-Public Use
  Company Number: CA-ROCHE-1501876

PATIENT
  Age: 16 Year
  Sex: Female

DRUGS (16)
  1. XOLAIR [Suspect]
     Active Substance: OMALIZUMAB
     Indication: Asthma
     Route: 058
     Dates: start: 20130626
  2. XOLAIR [Suspect]
     Active Substance: OMALIZUMAB
     Route: 058
     Dates: start: 20131113
  3. XOLAIR [Suspect]
     Active Substance: OMALIZUMAB
     Route: 058
     Dates: start: 201406, end: 201406
  4. XOLAIR [Suspect]
     Active Substance: OMALIZUMAB
     Route: 058
     Dates: start: 201409
  5. XOLAIR [Suspect]
     Active Substance: OMALIZUMAB
     Route: 058
     Dates: start: 20170510
  6. XOLAIR [Suspect]
     Active Substance: OMALIZUMAB
     Route: 058
     Dates: start: 20200130
  7. XOLAIR [Suspect]
     Active Substance: OMALIZUMAB
     Route: 058
     Dates: start: 20210401
  8. XOLAIR [Suspect]
     Active Substance: OMALIZUMAB
     Dosage: LAST DOSE GIVEN IN 24 DEC (UNKNOWN YEAR)
     Route: 058
  9. XOLAIR [Suspect]
     Active Substance: OMALIZUMAB
     Route: 058
     Dates: start: 20130626
  10. XOLAIR [Suspect]
     Active Substance: OMALIZUMAB
     Route: 058
  11. XOLAIR [Suspect]
     Active Substance: OMALIZUMAB
     Route: 058
  12. ZENHALE [Concomitant]
     Active Substance: FORMOTEROL FUMARATE\MOMETASONE FUROATE
  13. NASONEX [Concomitant]
     Active Substance: MOMETASONE FUROATE
  14. SINGULAIR [Concomitant]
     Active Substance: MONTELUKAST SODIUM
  15. VENTOLIN [Concomitant]
     Active Substance: ALBUTEROL SULFATE
  16. CETIRIZINE HYDROCHLORIDE [Concomitant]
     Active Substance: CETIRIZINE HYDROCHLORIDE

REACTIONS (22)
  - Pleural effusion [Unknown]
  - Streptococcal infection [Unknown]
  - Anaphylactic reaction [Recovered/Resolved]
  - Pharyngitis streptococcal [Unknown]
  - Kidney enlargement [Unknown]
  - Pyelonephritis [Unknown]
  - Gallbladder enlargement [Unknown]
  - Sepsis [Unknown]
  - Hepatomegaly [Unknown]
  - Pneumonia [Unknown]
  - Body temperature abnormal [Not Recovered/Not Resolved]
  - Product dose omission issue [Unknown]
  - Hypotension [Not Recovered/Not Resolved]
  - Dermatitis atopic [Not Recovered/Not Resolved]
  - Smear cervix abnormal [Unknown]
  - Asthma [Not Recovered/Not Resolved]
  - Productive cough [Unknown]
  - COVID-19 [Recovered/Resolved]
  - Fatigue [Recovered/Resolved]
  - Fibromyalgia [Unknown]
  - Malaise [Not Recovered/Not Resolved]
  - Erythema [Unknown]

NARRATIVE: CASE EVENT DATE: 20141002
